FAERS Safety Report 15093147 (Version 1)
Quarter: 2018Q2

REPORT INFORMATION
  Report Type: Spontaneous
  Country: US (occurrence: US)
  Receive Date: 20180629
  Receipt Date: 20180629
  Transmission Date: 20180711
  Serious: No
  Sender: FDA-Public Use
  Company Number: US-BAYER-2018-119752

PATIENT
  Sex: Male
  Weight: 76.96 kg

DRUGS (1)
  1. ZEGERID OTC CAPSULES [Suspect]
     Active Substance: OMEPRAZOLE\SODIUM BICARBONATE
     Dosage: 2 DF, QD
     Route: 048

REACTIONS (3)
  - Incorrect drug administration duration [Unknown]
  - Product prescribing issue [Unknown]
  - Incorrect dosage administered [Unknown]
